FAERS Safety Report 18726816 (Version 1)
Quarter: 2021Q1

REPORT INFORMATION
  Report Type: Report from Study
  Country: US (occurrence: US)
  Receive Date: 20210111
  Receipt Date: 20210111
  Transmission Date: 20210419
  Serious: Yes (Death, Hospitalization)
  Sender: FDA-Public Use
  Company Number: US-BAUSCH-BL-2019-005512

PATIENT
  Age: 68 Year
  Sex: Female

DRUGS (4)
  1. XIFAXAN [Suspect]
     Active Substance: RIFAXIMIN
     Indication: HEPATIC ENCEPHALOPATHY
     Route: 048
     Dates: start: 201809
  2. LACTULOSE. [Suspect]
     Active Substance: LACTULOSE
     Dosage: DOSE TAKEN AS PRESCRIBED
     Route: 048
  3. LACTULOSE. [Suspect]
     Active Substance: LACTULOSE
     Indication: PRODUCT USED FOR UNKNOWN INDICATION
     Route: 048
  4. LACTULOSE. [Suspect]
     Active Substance: LACTULOSE
     Dosage: DOSE REDUCED
     Route: 048

REACTIONS (3)
  - Ammonia increased [Recovered/Resolved]
  - Death [Fatal]
  - Diarrhoea [Recovered/Resolved]

NARRATIVE: CASE EVENT DATE: 20190214
